FAERS Safety Report 13689276 (Version 1)
Quarter: 2017Q2

REPORT INFORMATION
  Report Type: Spontaneous
  Country: US (occurrence: US)
  Receive Date: 20170626
  Receipt Date: 20170626
  Transmission Date: 20170830
  Serious: No
  Sender: FDA-Public Use
  Company Number: US-MYLANLABS-2016M1052491

PATIENT
  Age: 62 Year
  Sex: Male
  Weight: 92.63 kg

DRUGS (2)
  1. CYCLOBENZAPRINE. [Suspect]
     Active Substance: CYCLOBENZAPRINE
     Indication: POST-TRAUMATIC NECK SYNDROME
     Dosage: 10 MG, UNK
     Route: 048
     Dates: start: 20161028, end: 20161107
  2. CYCLOBENZAPRINE. [Suspect]
     Active Substance: CYCLOBENZAPRINE
     Indication: NERVE COMPRESSION

REACTIONS (3)
  - Blood pressure increased [Recovered/Resolved]
  - Road traffic accident [Recovered/Resolved]
  - Transient global amnesia [Recovering/Resolving]

NARRATIVE: CASE EVENT DATE: 20161104
